FAERS Safety Report 4776074-5 (Version None)
Quarter: 2005Q3

REPORT INFORMATION
  Report Type: 
  Country: None (occurrence: None)
  Receive Date: 20050914
  Receipt Date: 20050225
  Transmission Date: 20060218
  Serious: Yes (Death, Hospitalization)
  Sender: FDA-Public Use
  Company Number: 163-20785-05020537

PATIENT
  Age: 83 Year
  Sex: Female

DRUGS (6)
  1. THALOMID [Suspect]
     Indication: MULTIPLE MYELOMA
     Dosage: 100 MG, ORAL
     Route: 048
     Dates: start: 20050107, end: 20050118
  2. DEXAMETHASONE [Suspect]
     Indication: MULTIPLE MYELOMA
     Dosage: 40 MG, DAYS 1-4, 9-12, 17-20,
     Dates: start: 20050107, end: 20050118
  3. ZOMETA [Concomitant]
  4. PROTONIX [Concomitant]
  5. LOVENOX [Concomitant]
  6. SEPTRA DS [Concomitant]

REACTIONS (8)
  - CYTOMEGALOVIRUS COLITIS [None]
  - DISEASE PROGRESSION [None]
  - GASTROINTESTINAL HAEMORRHAGE [None]
  - HAEMOGLOBIN DECREASED [None]
  - HYPOALBUMINAEMIA [None]
  - HYPOCALCAEMIA [None]
  - MALNUTRITION [None]
  - PLEURAL EFFUSION [None]
